FAERS Safety Report 5618658-8 (Version None)
Quarter: 2008Q1

REPORT INFORMATION
  Report Type: 
  Country: None (occurrence: None)
  Receive Date: 20080205
  Receipt Date: 20080205
  Transmission Date: 20080703
  Serious: Yes (Life-Threatening)
  Sender: FDA-Public Use
  Company Number: None

PATIENT
  Sex: Male
  Weight: 92 kg

DRUGS (1)
  1. HEPARIN [Suspect]
     Indication: CARDIAC OPERATION
     Dosage: 30,000 UNITS X1 IV BOLUS
     Route: 040
     Dates: start: 20080201, end: 20080201

REACTIONS (1)
  - BLOOD PRESSURE DECREASED [None]
